FAERS Safety Report 4428269-8 (Version None)
Quarter: 2004Q3

REPORT INFORMATION
  Report Type: 
  Country: None (occurrence: None)
  Receive Date: 20040813
  Receipt Date: 20040805
  Transmission Date: 20050211
  Serious: Yes (Death)
  Sender: FDA-Public Use
  Company Number: 200213234GDS

PATIENT
  Sex: 0

DRUGS (1)
  1. APROTININ [Suspect]
     Indication: HAEMORRHAGE

REACTIONS (1)
  - HAEMORRHAGE [None]
